FAERS Safety Report 10110930 (Version 1)
Quarter: 2014Q2

REPORT INFORMATION
  Report Type: Spontaneous
  Country: US (occurrence: US)
  Receive Date: 20140425
  Receipt Date: 20140425
  Transmission Date: 20141212
  Serious: Yes (Hospitalization)
  Sender: FDA-Public Use
  Company Number: US-SA-2014SA049596

PATIENT
  Sex: Female

DRUGS (2)
  1. LANTUS [Suspect]
     Indication: TYPE 2 DIABETES MELLITUS
     Dosage: FORM: VIAL DOSE:70 UNIT(S)
     Route: 065
     Dates: start: 2007
  2. LANTUS [Suspect]
     Indication: TYPE 2 DIABETES MELLITUS
     Dosage: FORM: VIAL DOSE:30 UNIT(S)
     Route: 065

REACTIONS (4)
  - Renal cancer [Unknown]
  - Cyst [Unknown]
  - Vitamin D decreased [Unknown]
  - Blood glucose abnormal [Unknown]
